FAERS Safety Report 24287936 (Version 1)
Quarter: 2024Q3

REPORT INFORMATION
  Report Type: Spontaneous
  Country: CA (occurrence: CA)
  Receive Date: 20240905
  Receipt Date: 20240905
  Transmission Date: 20241016
  Serious: Yes (Other)
  Sender: ANI
  Company Number: CA-ANIPHARMA-2024-CA-003794

PATIENT
  Age: 21 Year
  Sex: Male

DRUGS (16)
  1. CANDESARTAN CILEXETIL [Suspect]
     Active Substance: CANDESARTAN CILEXETIL
     Indication: Familial mediterranean fever
     Dosage: 2 MG DAILY
  2. ASCORBIC ACID, BETACAROTENE, ERGOCALCIFEROL, TOCOPHEROL [Concomitant]
  3. FLUDROCORTISON ACETATE [Concomitant]
     Dosage: 0.1 MG DAILY
  4. GABAPENTIN [Concomitant]
     Active Substance: GABAPENTIN
     Dosage: 900 MG DAILY
  5. IVABRADINE HYDROCHLORIDE [Concomitant]
     Active Substance: IVABRADINE HYDROCHLORIDE
     Dosage: 2.5 MG UNK
  6. MIDODRINE HYDROCHLORIDE [Concomitant]
     Active Substance: MIDODRINE HYDROCHLORIDE
     Dosage: 5 MG DAILY
  7. PRUCALOPRIDE SUCCINATE [Concomitant]
     Active Substance: PRUCALOPRIDE SUCCINATE
     Dosage: 4 MG DAILY
  8. SULFASALAZINE [Concomitant]
     Active Substance: SULFASALAZINE
     Dosage: 1000 MG DAILY
  9. COLCHICINE [Suspect]
     Active Substance: COLCHICINE
     Dosage: .6 MG TID
  10. ANAKINRA [Concomitant]
     Active Substance: ANAKINRA
     Dosage: 100 MG DAILY
  11. DEXILANT [Concomitant]
     Active Substance: DEXLANSOPRAZOLE
     Dosage: 60 MG DAILY
  12. ONDANSETRON [Suspect]
     Active Substance: ONDANSETRON
     Dosage: 8 MG UNK
  13. FAMOTIDINE [Suspect]
     Active Substance: FAMOTIDINE
     Dosage: 40 MG DAILY / 40 MG DAILY
  14. FOLIC ACID [Suspect]
     Active Substance: FOLIC ACID
     Dosage: 4 MG DAILY
  15. NAPROXEN [Suspect]
     Active Substance: NAPROXEN
     Dosage: 500 MG UNK / 500 MG UNK
  16. ZOFRAN [Suspect]
     Active Substance: ONDANSETRON HYDROCHLORIDE
     Dosage: 8 MG UNK

REACTIONS (2)
  - Serum amyloid A protein increased [Unknown]
  - Off label use [Unknown]
